FAERS Safety Report 6578056-X (Version None)
Quarter: 2010Q1

REPORT INFORMATION
  Report Type: 
  Country: None (occurrence: None)
  Receive Date: 20100211
  Receipt Date: 20100203
  Transmission Date: 20100710
  Serious: Yes (Hospitalization, Other)
  Sender: FDA-Public Use
  Company Number: US-ELI_LILLY_AND_COMPANY-US201002001417

PATIENT
  Sex: Male

DRUGS (5)
  1. HUMALOG [Suspect]
     Indication: DIABETES MELLITUS
     Dosage: 10 U, EACH MORNING
     Dates: start: 20040101
  2. HUMALOG [Suspect]
     Dosage: 6 U, UNK
     Dates: start: 20040101
  3. HUMALOG [Suspect]
     Dosage: 12 U, EACH EVENING
     Dates: start: 20040101
  4. HUMALOG [Suspect]
     Dosage: UNK, AS NEEDED
     Dates: start: 20040101
  5. LANTUS [Concomitant]

REACTIONS (3)
  - ANKLE FRACTURE [None]
  - FALL [None]
  - IMPAIRED HEALING [None]
